FAERS Safety Report 15807520 (Version 1)
Quarter: 2019Q1

REPORT INFORMATION
  Report Type: Spontaneous
  Country: US (occurrence: US)
  Receive Date: 20190110
  Receipt Date: 20190110
  Transmission Date: 20190417
  Serious: No
  Sender: FDA-Public Use
  Company Number: None

PATIENT
  Age: 35 Year
  Sex: Male
  Weight: 117 kg

DRUGS (4)
  1. AMLODIPINE [Concomitant]
     Active Substance: AMLODIPINE BESYLATE
  2. LORATADINE. [Concomitant]
     Active Substance: LORATADINE
  3. MEN^S ONE A DAY VITAMIN [Concomitant]
  4. LOSARTAN 50MG TAB [Suspect]
     Active Substance: LOSARTAN
     Indication: HYPERTENSION
     Dosage: ?          QUANTITY:30 TABLET(S);?
     Route: 048

REACTIONS (2)
  - Blood pressure inadequately controlled [None]
  - Product physical issue [None]

NARRATIVE: CASE EVENT DATE: 20181129
